FAERS Safety Report 4308700-9 (Version None)
Quarter: 2004Q1

REPORT INFORMATION
  Report Type: 
  Country: None (occurrence: None)
  Receive Date: 20040301
  Receipt Date: 20040301
  Transmission Date: 20041129
  Serious: Yes (Hospitalization)
  Sender: FDA-Public Use
  Company Number: None

PATIENT
  Age: 38 Year
  Sex: Male

DRUGS (1)
  1. ZIDOVUDINE [Suspect]

REACTIONS (4)
  - ANAEMIA [None]
  - DYSPNOEA EXERTIONAL [None]
  - FATIGUE [None]
  - NEUTROPHIL COUNT DECREASED [None]
